FAERS Safety Report 7265693-2 (Version None)
Quarter: 2011Q1

REPORT INFORMATION
  Report Type: 
  Country: None (occurrence: None)
  Receive Date: 20110120
  Receipt Date: 20110114
  Transmission Date: 20110831
  Serious: Yes (Death, Life-Threatening)
  Sender: FDA-Public Use
  Company Number: 2010144586

PATIENT
  Age: 63 Year
  Sex: Male
  Weight: 80 kg

DRUGS (1)
  1. FRAGMIN [Suspect]
     Indication: PULMONARY EMBOLISM
     Dosage: 7500 IU, 2X/DAY, SUBCUTANEOUS
     Route: 058
     Dates: start: 20100923, end: 20101004

REACTIONS (5)
  - PANCREATITIS [None]
  - BLOOD PRESSURE DECREASED [None]
  - CONDITION AGGRAVATED [None]
  - CARDIO-RESPIRATORY ARREST [None]
  - HEPARIN-INDUCED THROMBOCYTOPENIA [None]
